FAERS Safety Report 9956186 (Version 1)
Quarter: 2014Q1

REPORT INFORMATION
  Report Type: Report from Study
  Country: US (occurrence: US)
  Receive Date: 20140304
  Receipt Date: 20140304
  Transmission Date: 20141002
  Serious: No
  Sender: FDA-Public Use
  Company Number: US-ABBVIE-13P-163-1086110-00

PATIENT
  Age: 65 Year
  Sex: Male
  Weight: 122.58 kg

DRUGS (5)
  1. HUMIRA [Suspect]
     Indication: GUTTATE PSORIASIS
     Route: 058
     Dates: start: 201303
  2. GLYBURIDE [Concomitant]
     Indication: DIABETES MELLITUS
  3. LOSARTAN [Concomitant]
     Indication: HYPERTENSION
  4. SITAGLIPTIN PHOSPHATE [Concomitant]
     Indication: DIABETES MELLITUS
  5. METFORMIN [Concomitant]
     Indication: DIABETES MELLITUS

REACTIONS (1)
  - Injection site reaction [Recovered/Resolved]
